FAERS Safety Report 4386219-7 (Version None)
Quarter: 2004Q2

REPORT INFORMATION
  Report Type: 
  Country: None (occurrence: None)
  Receive Date: 20040628
  Receipt Date: 20040628
  Transmission Date: 20050107
  Serious: Yes (Hospitalization)
  Sender: FDA-Public Use
  Company Number: None

PATIENT
  Age: 86 Year
  Sex: Male
  Weight: 92 kg

DRUGS (8)
  1. NESINTIDE [Suspect]
     Indication: CARDIAC FAILURE CONGESTIVE
     Dosage: 174 MCG BOLUS THEN 0.01 MCG/KG/MIN IV
     Route: 042
     Dates: start: 20040406, end: 20040406
  2. ASPIRIN [Concomitant]
  3. MESOPROLOL [Concomitant]
  4. FUROSEMIDE [Concomitant]
  5. KCL TAB [Concomitant]
  6. HYDRALAZINE [Concomitant]
  7. ALBUTEROL [Concomitant]
  8. OMEPRAZOLE [Concomitant]

REACTIONS (3)
  - CARDIAC FAILURE CONGESTIVE [None]
  - HYPOTENSION [None]
  - PNEUMONIA [None]
